FAERS Safety Report 9026067 (Version 1)
Quarter: 2012Q4

REPORT INFORMATION
  Report Type: Spontaneous
  Country: US (occurrence: None)
  Receive Date: 20121217
  Receipt Date: 20121217
  Transmission Date: 20130627
  Serious: Yes (Other)
  Sender: FDA-Public Use
  Company Number: None

PATIENT
  Age: 10 Year
  Sex: Female
  Weight: 44.45 kg

DRUGS (1)
  1. IMMUNE GLOBULIN SQ [Suspect]
     Route: 058
     Dates: start: 20121209, end: 20121209

REACTIONS (18)
  - Headache [None]
  - Pallor [None]
  - Cold sweat [None]
  - Hyperhidrosis [None]
  - Dizziness [None]
  - Vision blurred [None]
  - Gastric disorder [None]
  - Chest discomfort [None]
  - Vomiting [None]
  - Hypersensitivity [None]
  - Visual acuity tests abnormal [None]
  - Oropharyngeal pain [None]
  - Rash [None]
  - Fatigue [None]
  - Somnolence [None]
  - Asthma [None]
  - Cough [None]
  - Sputum discoloured [None]
